FAERS Safety Report 8508458-3 (Version None)
Quarter: 2012Q2

REPORT INFORMATION
  Report Type: 
  Country: None (occurrence: None)
  Receive Date: 20120405
  Receipt Date: 20090209
  Transmission Date: 20120825
  Serious: Yes (Other)
  Sender: FDA-Public Use
  Company Number: PHEH2009US00960

PATIENT
  Age: 63 Year
  Sex: Female
  Weight: 82.1 kg

DRUGS (7)
  1. TRENTAL [Concomitant]
  2. . [Concomitant]
  3. ALDACTONE [Concomitant]
  4. LIPITOR [Concomitant]
  5. LASIX [Concomitant]
  6. RECLAST [Suspect]
     Indication: OSTEOPOROSIS
     Dosage: 5 G, PER YEAR, INFUSION
     Dates: start: 20081211, end: 20081211
  7. PLAVIX [Concomitant]

REACTIONS (3)
  - BONE PAIN [None]
  - RED BLOOD CELL SEDIMENTATION RATE INCREASED [None]
  - ABASIA [None]
